FAERS Safety Report 4745839-8 (Version None)
Quarter: 2005Q3

REPORT INFORMATION
  Report Type: 
  Country: None (occurrence: None)
  Receive Date: 20050816
  Receipt Date: 20050808
  Transmission Date: 20060218
  Serious: Yes (Other)
  Sender: FDA-Public Use
  Company Number: FI-JNJFOC-20050802123

PATIENT
  Sex: Female

DRUGS (7)
  1. REMICADE [Suspect]
     Indication: RHEUMATOID ARTHRITIS
     Route: 042
  2. METHOTREXATE [Concomitant]
     Route: 048
  3. FOLIC ACID [Concomitant]
     Dosage: DURING METHOTREXATE DAYS
     Route: 048
  4. PREDNISON [Concomitant]
     Dosage: IN THE MORNINGS
     Route: 048
  5. FOSAMAX [Concomitant]
     Route: 048
  6. CALCIUM GLUCONATE [Concomitant]
     Route: 065
  7. VITAMIN D [Concomitant]
     Route: 065

REACTIONS (3)
  - BONE TUBERCULOSIS [None]
  - PLEURISY [None]
  - TUBERCULOSIS [None]
